FAERS Safety Report 8598406-2 (Version None)
Quarter: 2012Q3

REPORT INFORMATION
  Report Type: 
  Country: None (occurrence: None)
  Receive Date: 20120816
  Receipt Date: 20120712
  Transmission Date: 20120928
  Serious: Yes (Other)
  Sender: FDA-Public Use
  Company Number: CA-ABBOTT-12P-028-0955452-00

PATIENT
  Age: 85 Year
  Sex: Male

DRUGS (1)
  1. ULTIVA [Suspect]
     Indication: PRODUCT USED FOR UNKNOWN INDICATION
     Dosage: DOSAGE FORM/2 DAYS
     Route: 042

REACTIONS (1)
  - DRUG INEFFECTIVE [None]
